FAERS Safety Report 17300062 (Version 1)
Quarter: 2020Q1

REPORT INFORMATION
  Report Type: Spontaneous
  Country: DE (occurrence: DE)
  Receive Date: 20200122
  Receipt Date: 20200122
  Transmission Date: 20200409
  Serious: Yes (Hospitalization, Other)
  Sender: FDA-Public Use
  Company Number: DE-MYLANLABS-2020M1005144

PATIENT
  Sex: Female

DRUGS (23)
  1. VALPROIC ACID. [Suspect]
     Active Substance: VALPROIC ACID
     Dosage: UNK UNK, UNK
     Route: 048
  2. QUETIAPINE. [Suspect]
     Active Substance: QUETIAPINE
     Dosage: 200 MG, UNK
  3. NOVORAPID [Concomitant]
     Active Substance: INSULIN ASPART
     Indication: GESTATIONAL DIABETES
     Dosage: 5.5 IU, THROUGHOUT THE DAY
     Route: 058
     Dates: start: 2014
  4. VALPROIC ACID. [Suspect]
     Active Substance: VALPROIC ACID
     Dosage: 1300 ? 2500 MG DAILY
     Route: 048
  5. QUETIAPINE. [Suspect]
     Active Substance: QUETIAPINE
     Dosage: UNK UNK, UNK
  6. MIRTAZAPINE. [Concomitant]
     Active Substance: MIRTAZAPINE
     Dosage: 30 MG, QD
  7. ARIPIPRAZOLE. [Concomitant]
     Active Substance: ARIPIPRAZOLE
     Dosage: 5 MG, QD
  8. AMLODIPINE [Concomitant]
     Active Substance: AMLODIPINE BESYLATE
     Dosage: 5 MG, QD
  9. VALPROIC ACID. [Suspect]
     Active Substance: VALPROIC ACID
     Indication: BIPOLAR DISORDER
     Dosage: 1800 MG, QD
     Route: 048
     Dates: start: 201310
  10. LITHIUM. [Suspect]
     Active Substance: LITHIUM
     Dosage: 900 ? 2250 MG DAILY
     Route: 048
  11. QUETIAPINE. [Suspect]
     Active Substance: QUETIAPINE
     Indication: BIPOLAR DISORDER
     Dosage: UNK UNK, UNK
  12. QUETIAPINE. [Suspect]
     Active Substance: QUETIAPINE
     Dosage: 50 ? 200 MG DAILY
     Route: 048
  13. INSULIN HUMAN [Concomitant]
     Active Substance: INSULIN HUMAN
     Indication: GESTATIONAL DIABETES
     Dosage: 6 IU, QD
     Route: 058
     Dates: start: 2014
  14. QUETIAPINE. [Suspect]
     Active Substance: QUETIAPINE
     Dosage: 50-100 MG, DAILY
     Route: 048
     Dates: start: 201310
  15. LITHIUM. [Suspect]
     Active Substance: LITHIUM
     Indication: BIPOLAR DISORDER
     Dosage: LOW DOSE
  16. ERGENYL CHRONO [Suspect]
     Active Substance: VALPROIC ACID
     Indication: BIPOLAR DISORDER
     Dosage: UNK UNK,QD
     Route: 048
  17. L-THYROXIN                         /00068001/ [Concomitant]
     Active Substance: LEVOTHYROXINE
     Dosage: 75 UG, QD
  18. PANTOPRAZOLE [Concomitant]
     Active Substance: PANTOPRAZOLE
     Dosage: 40 MG, QD
  19. VALPROIC ACID. [Suspect]
     Active Substance: VALPROIC ACID
     Dosage: UNK, UNK, QD
     Route: 048
  20. LITHIUM. [Suspect]
     Active Substance: LITHIUM
     Dosage: UNK UNK, UNK
  21. LITHIUM. [Suspect]
     Active Substance: LITHIUM
     Dosage: UNK UNK, UNK
  22. CITALOPRAM [Concomitant]
     Active Substance: CITALOPRAM HYDROBROMIDE
     Dosage: 20 MG, QD
  23. LAMOTRIGIN [Concomitant]
     Active Substance: LAMOTRIGINE
     Dosage: 100 MG, QD

REACTIONS (19)
  - Exposure during pregnancy [Unknown]
  - Abdominal distension [Unknown]
  - Sedation [Unknown]
  - Weight increased [Unknown]
  - Blood glucose increased [Unknown]
  - Constipation [Unknown]
  - Gestational diabetes [Unknown]
  - Blood glucose fluctuation [Unknown]
  - Frequent bowel movements [Recovered/Resolved]
  - Abdominal pain [Recovered/Resolved]
  - Diarrhoea [Unknown]
  - Sciatica [Unknown]
  - Tremor [Unknown]
  - Mania [Unknown]
  - Bipolar I disorder [Unknown]
  - Polyhydramnios [Unknown]
  - Obesity [Unknown]
  - Gastric disorder [Unknown]
  - Adverse drug reaction [Unknown]

NARRATIVE: CASE EVENT DATE: 2013
